FAERS Safety Report 8622725-4 (Version None)
Quarter: 2012Q3

REPORT INFORMATION
  Report Type: 
  Country: None (occurrence: None)
  Receive Date: 20120827
  Receipt Date: 20120821
  Transmission Date: 20120928
  Serious: Yes (Hospitalization)
  Sender: FDA-Public Use
  Company Number: US-JNJFOC-20120712220

PATIENT
  Sex: Male
  Weight: 59.2 kg

DRUGS (6)
  1. HUMIRA [Concomitant]
     Dates: start: 20090917
  2. ANTIBIOTICS [Concomitant]
     Indication: INFLAMMATORY BOWEL DISEASE
  3. METHOTREXATE [Concomitant]
  4. SERTRALINE HYDROCHLORIDE [Concomitant]
  5. MELATONIN [Concomitant]
  6. INFLIXIMAB, RECOMBINANT [Suspect]
     Indication: CROHN'S DISEASE
     Route: 042
     Dates: start: 20081002, end: 20090521

REACTIONS (1)
  - INFLAMMATORY BOWEL DISEASE [None]
